FAERS Safety Report 8780201 (Version 1)
Quarter: 2012Q4

REPORT INFORMATION
  Report Type: Spontaneous
  Country: US (occurrence: None)
  Receive Date: 20120904
  Receipt Date: 20120904
  Transmission Date: 20130627
  Serious: Yes (Hospitalization)
  Sender: FDA-Public Use
  Company Number: None

PATIENT
  Age: 63 Year
  Sex: Male
  Weight: 84.5 kg

DRUGS (1)
  1. EFFIENT 10 MG ELI LILLY + CO [Suspect]
     Route: 048
     Dates: start: 20120503, end: 20120803

REACTIONS (14)
  - Chest pain [None]
  - Dyspnoea [None]
  - Palpitations [None]
  - Orthopnoea [None]
  - Pharyngeal oedema [None]
  - Neck pain [None]
  - Pain in extremity [None]
  - Insomnia [None]
  - Oropharyngeal pain [None]
  - Oral pain [None]
  - Dry mouth [None]
  - Dysphonia [None]
  - Pallor [None]
  - Dysarthria [None]
